FAERS Safety Report 24734013 (Version 1)
Quarter: 2024Q4

REPORT INFORMATION
  Report Type: Spontaneous
  Country: CA (occurrence: CA)
  Receive Date: 20241214
  Receipt Date: 20241214
  Transmission Date: 20250114
  Serious: Yes (Hospitalization, Other)
  Sender: UNITED THERAPEUTICS
  Company Number: CA-UNITED THERAPEUTICS-UNT-2024-039485

PATIENT
  Age: 24 Month
  Sex: Female
  Weight: 13 kg

DRUGS (1)
  1. UNITUXIN [Suspect]
     Active Substance: DINUTUXIMAB
     Indication: Neuroblastoma
     Dosage: UNK, CYCLICAL
     Route: 041

REACTIONS (2)
  - Paraneoplastic syndrome [Recovered/Resolved]
  - General physical health deterioration [Recovered/Resolved]
